FAERS Safety Report 22880721 (Version 2)
Quarter: 2023Q4

REPORT INFORMATION
  Report Type: Report from Study
  Country: US (occurrence: US)
  Receive Date: 20230830
  Receipt Date: 20231023
  Transmission Date: 20240109
  Serious: Yes (Other)
  Sender: FDA-Public Use
  Company Number: US-ABBVIE-5386561

PATIENT
  Age: 26 Year
  Sex: Male

DRUGS (1)
  1. SKYRIZI [Suspect]
     Active Substance: RISANKIZUMAB-RZAA
     Indication: Crohn^s disease
     Route: 058
     Dates: start: 20221006

REACTIONS (7)
  - Intestinal obstruction [Unknown]
  - Abdominal pain upper [Unknown]
  - Therapeutic response shortened [Unknown]
  - Adverse food reaction [Unknown]
  - Impaired gastric emptying [Unknown]
  - Vomiting [Unknown]
  - Intestinal stenosis [Unknown]

NARRATIVE: CASE EVENT DATE: 20231013
